FAERS Safety Report 23193887 (Version 2)
Quarter: 2023Q4

REPORT INFORMATION
  Report Type: Spontaneous
  Country: US (occurrence: US)
  Receive Date: 20231116
  Receipt Date: 20231122
  Transmission Date: 20240109
  Serious: No
  Sender: FDA-Public Use
  Company Number: US-AMGEN-USASP2023204145

PATIENT
  Age: 68 Year
  Sex: Female

DRUGS (1)
  1. BLINCYTO [Suspect]
     Active Substance: BLINATUMOMAB
     Indication: Acute lymphocytic leukaemia
     Dosage: 210 MICROGRAM, UNK
     Route: 065

REACTIONS (2)
  - Intercepted product preparation error [Unknown]
  - Product label confusion [Unknown]

NARRATIVE: CASE EVENT DATE: 20231113
